FAERS Safety Report 9010848 (Version 2)
Quarter: 2013Q1

REPORT INFORMATION
  Report Type: Spontaneous
  Country: US (occurrence: US)
  Receive Date: 20130109
  Receipt Date: 20130213
  Transmission Date: 20140127
  Serious: Yes (Other)
  Sender: FDA-Public Use
  Company Number: US-TEVA-379521USA

PATIENT
  Age: 22 Year
  Sex: Female
  Weight: 52.21 kg

DRUGS (2)
  1. PARAGARD 380A [Suspect]
     Indication: CONTRACEPTION
     Route: 015
     Dates: start: 20121031
  2. PRENATAL VITAMINS [Concomitant]
     Indication: MEDICAL DIET

REACTIONS (1)
  - Adenocarcinoma of the cervix [Recovered/Resolved]
